FAERS Safety Report 20718978 (Version 1)
Quarter: 2022Q2

REPORT INFORMATION
  Report Type: Spontaneous
  Country: SA (occurrence: SA)
  Receive Date: 20220418
  Receipt Date: 20220418
  Transmission Date: 20220721
  Serious: Yes (Life-Threatening, Hospitalization, Congenital Anomaly)
  Sender: FDA-Public Use
  Company Number: SA-STRIDES ARCOLAB LIMITED-2022SP003984

PATIENT
  Sex: Female
  Weight: 1.69 kg

DRUGS (5)
  1. MYCOPHENOLATE MOFETIL [Suspect]
     Active Substance: MYCOPHENOLATE MOFETIL
     Indication: Product used for unknown indication
     Dosage: UNK
     Route: 064
  2. PREDNISOLONE [Suspect]
     Active Substance: PREDNISOLONE
     Indication: Product used for unknown indication
     Dosage: UNK (PATIENT MOTHER RECIEVED 1G TWICE A DAY)
     Route: 064
  3. PERINDOPRIL [Suspect]
     Active Substance: PERINDOPRIL
     Indication: Product used for unknown indication
     Dosage: UNK
     Route: 064
  4. HYDROXYCHLOROQUINE [Suspect]
     Active Substance: HYDROXYCHLOROQUINE
     Indication: Product used for unknown indication
     Dosage: UNK
     Route: 064
  5. BISOPROLOL [Suspect]
     Active Substance: BISOPROLOL
     Indication: Product used for unknown indication
     Dosage: UNK
     Route: 064

REACTIONS (13)
  - Multiple congenital abnormalities [Unknown]
  - Nose deformity [Unknown]
  - Bradycardia [Unknown]
  - Neonatal hypoxia [Unknown]
  - Patent ductus arteriosus [Unknown]
  - Hypertelorism [Unknown]
  - Microtia [Unknown]
  - Micrognathia [Unknown]
  - Cleft lip and palate [Unknown]
  - Coloboma [Unknown]
  - Kidney malformation [Unknown]
  - Ventricular septal defect [Unknown]
  - Foetal exposure during pregnancy [Unknown]
